FAERS Safety Report 6637477-7 (Version None)
Quarter: 2010Q1

REPORT INFORMATION
  Report Type: 
  Country: None (occurrence: None)
  Receive Date: 20100316
  Receipt Date: 20100304
  Transmission Date: 20100710
  Serious: Yes (Life-Threatening, Other)
  Sender: FDA-Public Use
  Company Number: IE-BRISTOL-MYERS SQUIBB COMPANY-15015480

PATIENT
  Sex: Female
  Weight: 3 kg

DRUGS (3)
  1. ATAZANAVIR [Suspect]
     Route: 064
     Dates: start: 20090416
  2. RITONAVIR [Suspect]
     Route: 064
     Dates: start: 20090416
  3. TRUVADA [Suspect]
     Dosage: 1 DF =1 TABS
     Route: 064
     Dates: start: 20090416

REACTIONS (4)
  - DRUG WITHDRAWAL SYNDROME NEONATAL [None]
  - NEUROLOGICAL EXAMINATION ABNORMAL [None]
  - PREMATURE BABY [None]
  - SMALL FOR DATES BABY [None]
